FAERS Safety Report 9977748 (Version 2)
Quarter: 2014Q1

REPORT INFORMATION
  Report Type: Report from Study
  Country: US (occurrence: US)
  Receive Date: 20140306
  Receipt Date: 20140306
  Transmission Date: 20141002
  Serious: No
  Sender: FDA-Public Use
  Company Number: US-ABBVIE-13P-163-1144099-00

PATIENT
  Age: 30 Year
  Sex: Female

DRUGS (10)
  1. HUMIRA [Suspect]
     Indication: COLITIS ULCERATIVE
     Dosage: LOADING DOSE
     Dates: start: 20130830, end: 20130830
  2. HUMIRA [Suspect]
     Dates: start: 20130913, end: 20130913
  3. HUMIRA [Suspect]
     Route: 058
     Dates: start: 20130927
  4. UCERIS [Concomitant]
     Indication: COLITIS ULCERATIVE
     Dosage: DAILY
  5. ALDACTONE [Concomitant]
     Indication: ACNE
     Dosage: DAILY
  6. BIRTH CONTOL PILLS [Concomitant]
     Indication: CONTRACEPTION
  7. VITAMIN D3 [Concomitant]
     Indication: PRODUCT USED FOR UNKNOWN INDICATION
     Dosage: DAILY
  8. PROBIOTIC [Concomitant]
     Indication: PRODUCT USED FOR UNKNOWN INDICATION
     Dosage: DAILY
  9. ZYRTEC [Concomitant]
     Indication: SEASONAL ALLERGY
  10. BIOTIN [Concomitant]
     Indication: PRODUCT USED FOR UNKNOWN INDICATION
     Dosage: DAILY

REACTIONS (6)
  - Injection site bruising [Recovering/Resolving]
  - Injection site pain [Recovering/Resolving]
  - Injection site pain [Recovered/Resolved]
  - Injection site pain [Recovered/Resolved]
  - Injection site pain [Recovered/Resolved]
  - Injection site pain [Recovered/Resolved]
